FAERS Safety Report 16084391 (Version 1)
Quarter: 2019Q1

REPORT INFORMATION
  Report Type: Report from Study
  Country: JP (occurrence: JP)
  Receive Date: 20190318
  Receipt Date: 20190318
  Transmission Date: 20190418
  Serious: Yes (Death, Hospitalization, Other)
  Sender: FDA-Public Use
  Company Number: PHHY2014JP181570

PATIENT
  Age: 84 Year
  Sex: Male
  Weight: 47 kg

DRUGS (4)
  1. VOTRIENT [Suspect]
     Active Substance: PAZOPANIB HYDROCHLORIDE
     Dosage: 800 MG, QD
     Route: 048
     Dates: start: 20140226, end: 20140604
  2. VOTRIENT [Suspect]
     Active Substance: PAZOPANIB HYDROCHLORIDE
     Indication: NEUROFIBROSARCOMA
     Dosage: 400 MG, QD
     Route: 048
     Dates: start: 20130604, end: 20130909
  3. VOTRIENT [Suspect]
     Active Substance: PAZOPANIB HYDROCHLORIDE
     Dosage: 600 MG, QD
     Route: 048
     Dates: start: 20130910, end: 20131125
  4. VOTRIENT [Suspect]
     Active Substance: PAZOPANIB HYDROCHLORIDE
     Dosage: 800 MG, QD
     Route: 048
     Dates: start: 20131126, end: 20140217

REACTIONS (6)
  - Renal impairment [Recovered/Resolved]
  - Hypertension [Unknown]
  - Pneumonia [Recovered/Resolved]
  - Decreased appetite [Unknown]
  - Pleurisy [Recovered/Resolved]
  - Malignant neoplasm progression [Fatal]

NARRATIVE: CASE EVENT DATE: 20130702
